FAERS Safety Report 12923816 (Version 1)
Quarter: 2016Q4

REPORT INFORMATION
  Report Type: Spontaneous
  Country: US (occurrence: US)
  Receive Date: 20161108
  Receipt Date: 20161108
  Transmission Date: 20170207
  Serious: No
  Sender: FDA-Public Use
  Company Number: None

PATIENT
  Age: 73 Year
  Sex: Male

DRUGS (2)
  1. SIROLIMUS TAB 1MG [Suspect]
     Active Substance: SIROLIMUS
     Indication: TYPE 2 DIABETES MELLITUS
  2. SIROLIMUS TAB 1MG [Suspect]
     Active Substance: SIROLIMUS
     Indication: RENAL TRANSPLANT

REACTIONS (2)
  - Chills [None]
  - Tongue disorder [None]

NARRATIVE: CASE EVENT DATE: 20161108
